FAERS Safety Report 19260424 (Version 1)
Quarter: 2021Q2

REPORT INFORMATION
  Report Type: Spontaneous
  Country: US (occurrence: US)
  Receive Date: 20210514
  Receipt Date: 20210514
  Transmission Date: 20210717
  Serious: No
  Sender: FDA-Public Use
  Company Number: US-KALA PHARAMACEUTICALS-2021KLA00023

PATIENT
  Age: 85 Year
  Sex: Male
  Weight: 78.91 kg

DRUGS (7)
  1. OFLOXACIN. [Concomitant]
     Active Substance: OFLOXACIN
  2. COENZYME Q10 [Concomitant]
     Active Substance: DIETARY SUPPLEMENT\UBIDECARENONE
     Dosage: UNK
     Dates: start: 20210211
  3. PANTOPRAZOLE [Concomitant]
     Active Substance: PANTOPRAZOLE
  4. PREDNISOLONE. [Concomitant]
     Active Substance: PREDNISOLONE
  5. EYSUVIS [Suspect]
     Active Substance: LOTEPREDNOL ETABONATE
     Indication: DRY EYE
     Dosage: 1 DROP, 1X/DAY
     Route: 047
     Dates: start: 20210126, end: 20210216
  6. ROSUVASTATIN. [Concomitant]
     Active Substance: ROSUVASTATIN
  7. PROLENSA [Concomitant]
     Active Substance: BROMFENAC SODIUM
     Dosage: 1 DROP, 1X/DAY

REACTIONS (2)
  - Chromaturia [Not Recovered/Not Resolved]
  - Off label use [Recovered/Resolved]

NARRATIVE: CASE EVENT DATE: 20210126
